FAERS Safety Report 7564075-3 (Version None)
Quarter: 2011Q2

REPORT INFORMATION
  Report Type: 
  Country: None (occurrence: None)
  Receive Date: 20110622
  Receipt Date: 20110615
  Transmission Date: 20111010
  Serious: Yes (Hospitalization, Other)
  Sender: FDA-Public Use
  Company Number: US-US-EMD SERONO, INC.-7042911

PATIENT
  Sex: Male
  Weight: 111 kg

DRUGS (3)
  1. REBIF [Suspect]
     Route: 058
     Dates: start: 20110314
  2. METHADONE HCL [Concomitant]
  3. REBIF [Suspect]
     Indication: MULTIPLE SCLEROSIS
     Route: 058
     Dates: start: 20030605, end: 20110101

REACTIONS (8)
  - SUICIDAL BEHAVIOUR [None]
  - NASOPHARYNGITIS [None]
  - TINNITUS [None]
  - INJECTION SITE PRURITUS [None]
  - INJECTION SITE ERYTHEMA [None]
  - ARTHRITIS [None]
  - MULTIPLE SCLEROSIS RELAPSE [None]
  - FLUID RETENTION [None]
